FAERS Safety Report 4377975-2 (Version None)
Quarter: 2004Q2

REPORT INFORMATION
  Report Type: 
  Country: None (occurrence: None)
  Receive Date: 20040616
  Receipt Date: 20040602
  Transmission Date: 20050107
  Serious: Yes (Other)
  Sender: FDA-Public Use
  Company Number: PHBS2004JP07373

PATIENT
  Age: 58 Year
  Sex: Male
  Weight: 46 kg

DRUGS (16)
  1. DIOVAN [Suspect]
     Dosage: 80 MG/DAY
     Route: 048
     Dates: start: 20031219, end: 20031229
  2. ARTIST [Suspect]
     Indication: HYPERTENSION
     Dosage: 10 MG/DAY
     Route: 048
     Dates: start: 20031219, end: 20031229
  3. BAYASPIRIN [Concomitant]
     Route: 048
  4. PANALDINE [Concomitant]
     Route: 048
     Dates: end: 20031229
  5. PLETAL [Concomitant]
     Route: 048
     Dates: end: 20031225
  6. MEVALOTIN [Concomitant]
     Route: 048
     Dates: end: 20031229
  7. GASTER [Concomitant]
     Route: 048
     Dates: end: 20031229
  8. MAGNESIUM OXIDE [Concomitant]
     Route: 048
     Dates: end: 20031229
  9. PENFILL R [Concomitant]
     Dates: end: 20031229
  10. EPERISONE [Concomitant]
     Route: 048
     Dates: end: 20031229
  11. KINEDAK [Concomitant]
     Route: 048
     Dates: end: 20031229
  12. IMAGENIL [Concomitant]
     Dates: end: 20031229
  13. MORPHINE [Concomitant]
     Route: 048
     Dates: end: 20031229
  14. ATROPINE [Concomitant]
     Dates: end: 20031229
  15. UNASYN [Concomitant]
     Dates: end: 20031229
  16. NOVO HEPARIN CALCIUM [Concomitant]
     Dates: end: 20031229

REACTIONS (6)
  - HEADACHE [None]
  - HYPONATRAEMIA [None]
  - INAPPROPRIATE ANTIDIURETIC HORMONE SECRETION [None]
  - MALAISE [None]
  - NAUSEA [None]
  - VOMITING [None]
